FAERS Safety Report 7991513-4 (Version None)
Quarter: 2011Q4

REPORT INFORMATION
  Report Type: 
  Country: None (occurrence: None)
  Receive Date: 20111219
  Receipt Date: 20111013
  Transmission Date: 20120403
  Serious: No
  Sender: FDA-Public Use
  Company Number: US-ALLERGAN-1105325US

PATIENT
  Age: 38 Year
  Sex: Female

DRUGS (3)
  1. LATISSE [Suspect]
     Route: 061
  2. MASCARA [Concomitant]
  3. LATISSE [Suspect]
     Indication: GROWTH OF EYELASHES
     Dosage: 1 GTT, QOD
     Route: 061
     Dates: start: 20101201, end: 20110401

REACTIONS (1)
  - MADAROSIS [None]
